FAERS Safety Report 25071515 (Version 3)
Quarter: 2025Q2

REPORT INFORMATION
  Report Type: Report from Study
  Country: US (occurrence: US)
  Receive Date: 20250312
  Receipt Date: 20250421
  Transmission Date: 20250716
  Serious: Yes (Other)
  Sender: JOHNSON AND JOHNSON
  Company Number: US-JNJFOC-20250269099

PATIENT
  Age: 33 Year
  Sex: Female

DRUGS (2)
  1. GUSELKUMAB [Suspect]
     Active Substance: GUSELKUMAB
     Indication: Psoriasis
     Route: 065
     Dates: start: 20250225
  2. GUSELKUMAB [Suspect]
     Active Substance: GUSELKUMAB
     Indication: Psoriatic arthropathy

REACTIONS (8)
  - Type 1 diabetes mellitus [Unknown]
  - Device leakage [Unknown]
  - Injection site haemorrhage [Unknown]
  - Device defective [Unknown]
  - Product dose omission issue [Unknown]
  - Scar [Unknown]
  - Injection site pain [Unknown]
  - Off label use [Unknown]
